FAERS Safety Report 5424748-5 (Version None)
Quarter: 2007Q3

REPORT INFORMATION
  Report Type: 
  Country: None (occurrence: None)
  Receive Date: 20070822
  Receipt Date: 20070810
  Transmission Date: 20080115
  Serious: Yes (Other)
  Sender: FDA-Public Use
  Company Number: 2007US-09112

PATIENT
  Age: 38 Year
  Sex: Female

DRUGS (1)
  1. NITROFURANTOIN [Suspect]
     Indication: URINARY TRACT INFECTION

REACTIONS (21)
  - ANOSMIA [None]
  - CHEST PAIN [None]
  - DISEASE RECURRENCE [None]
  - DRUG EXPOSURE DURING PREGNANCY [None]
  - HYPERTONIC BLADDER [None]
  - HYPOAESTHESIA [None]
  - MULTIPLE SCLEROSIS [None]
  - MUSCLE SPASMS [None]
  - MYOCLONUS [None]
  - NEURALGIA [None]
  - NEUROPATHY PERIPHERAL [None]
  - PAIN IN EXTREMITY [None]
  - PARAESTHESIA [None]
  - PERIPHERAL SENSORY NEUROPATHY [None]
  - POLLAKIURIA [None]
  - POST VIRAL FATIGUE SYNDROME [None]
  - PREGNANCY [None]
  - SEXUAL DYSFUNCTION [None]
  - TREMOR [None]
  - URINARY TRACT INFECTION [None]
  - VULVAL DISORDER [None]
